FAERS Safety Report 19496770 (Version 1)
Quarter: 2021Q3

REPORT INFORMATION
  Report Type: Spontaneous
  Country: US (occurrence: US)
  Receive Date: 20210703
  Receipt Date: 20210703
  Transmission Date: 20211014
  Serious: Yes (Hospitalization)
  Sender: FDA-Public Use
  Company Number: None

PATIENT
  Sex: Male

DRUGS (14)
  1. METFORMIN [Concomitant]
     Active Substance: METFORMIN HYDROCHLORIDE
  2. FUROSEMIDE. [Concomitant]
     Active Substance: FUROSEMIDE
  3. ROSUVASTATIN. [Concomitant]
     Active Substance: ROSUVASTATIN
  4. METFORMIN [Concomitant]
     Active Substance: METFORMIN HYDROCHLORIDE
  5. IBUPROFEN. [Concomitant]
     Active Substance: IBUPROFEN
  6. DILTIAZEM. [Concomitant]
     Active Substance: DILTIAZEM
  7. OXYCODONE [Concomitant]
     Active Substance: OXYCODONE
  8. GABAPENTIN. [Concomitant]
     Active Substance: GABAPENTIN
  9. DOFETILIDE. [Suspect]
     Active Substance: DOFETILIDE
     Indication: ATRIAL FIBRILLATION
     Route: 048
     Dates: start: 20200212
  10. METOPROLOL TARTRATE. [Concomitant]
     Active Substance: METOPROLOL TARTRATE
  11. TEMAZEPAM. [Concomitant]
     Active Substance: TEMAZEPAM
  12. OZEMPIC [Concomitant]
     Active Substance: SEMAGLUTIDE
  13. CHLOR/CLIDI [Concomitant]
  14. EPLERENONE. [Concomitant]
     Active Substance: EPLERENONE

REACTIONS (1)
  - Sepsis [None]
